FAERS Safety Report 20814493 (Version 2)
Quarter: 2022Q3

REPORT INFORMATION
  Report Type: Spontaneous
  Country: GB (occurrence: GB)
  Receive Date: 20220511
  Receipt Date: 20220721
  Transmission Date: 20221027
  Serious: No
  Sender: FDA-Public Use
  Company Number: GB-PFIZER INC-202200544399

PATIENT
  Age: 13 Year
  Sex: Male

DRUGS (1)
  1. ENBREL [Suspect]
     Active Substance: ETANERCEPT
     Indication: Juvenile idiopathic arthritis
     Dosage: 50 MG, WEEKLY
     Route: 058

REACTIONS (3)
  - Anxiety [Unknown]
  - Product dispensing error [Unknown]
  - Product dose omission issue [Unknown]
